FAERS Safety Report 10260900 (Version 1)
Quarter: 2014Q2

REPORT INFORMATION
  Report Type: Report from Study
  Country: BR (occurrence: BR)
  Receive Date: 20140626
  Receipt Date: 20140626
  Transmission Date: 20141212
  Serious: Yes (Other)
  Sender: FDA-Public Use
  Company Number: PHHY2014BR078380

PATIENT
  Sex: Male
  Weight: 79 kg

DRUGS (14)
  1. DIOVAN [Suspect]
     Dosage: 160 MG, UNK
  2. DIOVAN [Suspect]
     Dosage: 320 MG, UNK
  3. DIOVAN [Suspect]
     Dosage: 80 MG, UNK
  4. DIOVAN AMLO FIX [Suspect]
     Dosage: 160/10 MG, UNK
  5. DIOVAN AMLO FIX [Suspect]
     Dosage: 160/5 MG, UNK
  6. DIOVAN AMLO FIX [Suspect]
     Dosage: 320/10 MG, UNK
  7. DIOVAN AMLO FIX [Suspect]
     Dosage: 320/5 MG, UNK
  8. DIOVAN AMLO FIX [Suspect]
     Dosage: 80/5 MG, UNK
  9. DIOVAN HCT [Suspect]
     Dosage: 160/12.5 MG, UNK
  10. DIOVAN HCT [Suspect]
     Dosage: 160/25 MG, UNK
  11. DIOVAN HCT [Suspect]
     Dosage: 80/12.5 MG, UNK
  12. DIOCOMB SI [Suspect]
     Dosage: 160/20 MG, UNK
  13. DIOCOMB SI [Suspect]
     Dosage: 80/20 MG, UNK
  14. CAPTOPRIL [Concomitant]
     Indication: HYPERTENSION
     Dosage: 25 MG, UNK

REACTIONS (6)
  - Glaucoma [Unknown]
  - Intraocular pressure increased [Unknown]
  - Visual impairment [Unknown]
  - Ocular hyperaemia [Unknown]
  - Blood pressure increased [Unknown]
  - Stress [Unknown]
